FAERS Safety Report 7777391 (Version 3)
Quarter: 2012Q4

REPORT INFORMATION
  Report Type: 
  Country: DE (occurrence: DE)
  Receive Date: 20110128
  Receipt Date: 20121029
  Transmission Date: 20130627
  Serious: Yes (Death, Hospitalization)
  Sender: FDA-Public Use
  Company Number: DE-RANBAXY-2011RR-41183

PATIENT
  Age: 75 Year
  Sex: Male
  Weight: 76 kg

DRUGS (3)
  1. AMOXICILLIN [Suspect]
     Indication: HELICOBACTER GASTRITIS
     Dosage: 1000 mg, bid
     Route: 048
     Dates: start: 20101213, end: 20101227
  2. KLACID [Suspect]
     Indication: HELICOBACTER GASTRITIS
     Dosage: 500 mg, bid
     Route: 048
     Dates: start: 20101213, end: 20101227
  3. PANTOZOL [Concomitant]
     Indication: HELICOBACTER GASTRITIS
     Dosage: 40 mg, bid
     Route: 048
     Dates: start: 20101213

REACTIONS (1)
  - Liver disorder [Recovering/Resolving]
